FAERS Safety Report 18193516 (Version 1)
Quarter: 2020Q3

REPORT INFORMATION
  Report Type: Spontaneous
  Country: FR (occurrence: FR)
  Receive Date: 20200825
  Receipt Date: 20200825
  Transmission Date: 20201103
  Serious: Yes (Hospitalization)
  Sender: FDA-Public Use
  Company Number: FR-PFIZER INC-2020325181

PATIENT
  Age: 63 Year
  Sex: Female

DRUGS (2)
  1. IBRANCE [Suspect]
     Active Substance: PALBOCICLIB
     Indication: MALIGNANT PERITONEAL NEOPLASM
     Dosage: 2625 MG EVERY 28 DAYS
     Route: 048
     Dates: start: 20200422
  2. LETROZOLE. [Suspect]
     Active Substance: LETROZOLE
     Indication: MALIGNANT PERITONEAL NEOPLASM
     Dosage: 2.5 MG, 1X/DAY
     Route: 048
     Dates: start: 20200422

REACTIONS (2)
  - Venous thrombosis limb [Recovering/Resolving]
  - Pulmonary embolism [Recovering/Resolving]

NARRATIVE: CASE EVENT DATE: 20200720
